FAERS Safety Report 19885351 (Version 1)
Quarter: 2021Q3

REPORT INFORMATION
  Report Type: Spontaneous
  Country: JP (occurrence: JP)
  Receive Date: 20210927
  Receipt Date: 20210927
  Transmission Date: 20211014
  Serious: Yes (Other)
  Sender: FDA-Public Use
  Company Number: JP-ACCORD-239726

PATIENT
  Age: 41 Year
  Sex: Male

DRUGS (2)
  1. CISPLATIN. [Suspect]
     Active Substance: CISPLATIN
     Indication: NASOPHARYNGEAL CANCER
     Dosage: THREE COURSES OF TRIWEEKLY CISPLATIN AT 100 MG/M2
  2. PREDNISONE. [Concomitant]
     Active Substance: PREDNISONE
     Indication: DERMATOMYOSITIS

REACTIONS (6)
  - Dry mouth [Unknown]
  - Dysgeusia [Unknown]
  - Myosclerosis [Unknown]
  - Peripheral sensory neuropathy [Unknown]
  - Neck pain [Unknown]
  - Alopecia [Unknown]
